FAERS Safety Report 5660024-3 (Version None)
Quarter: 2008Q1

REPORT INFORMATION
  Report Type: 
  Country: None (occurrence: None)
  Receive Date: 20080311
  Receipt Date: 20070824
  Transmission Date: 20080703
  Serious: No
  Sender: FDA-Public Use
  Company Number: US-BAYER-200712742BCC

PATIENT
  Age: 76 Year
  Sex: Female
  Weight: 70 kg

DRUGS (8)
  1. ALEVE [Suspect]
     Indication: ARTHRITIS
     Route: 048
  2. BLOOD PRESSURE MEDICATION [Concomitant]
  3. PREMARIN [Concomitant]
  4. THYROID TAB [Concomitant]
  5. CHOLESTEROL [Concomitant]
  6. VITAMIN D [Concomitant]
  7. GLUCOSAMINE [Concomitant]
  8. CHONDROITIN [Concomitant]

REACTIONS (1)
  - CONTUSION [None]
